FAERS Safety Report 5256888-8 (Version None)
Quarter: 2007Q1

REPORT INFORMATION
  Report Type: 
  Country: None (occurrence: None)
  Receive Date: 20070306
  Receipt Date: 20070228
  Transmission Date: 20070707
  Serious: Yes (Hospitalization)
  Sender: FDA-Public Use
  Company Number: FR-MERCK-0702FRA00085

PATIENT
  Age: 10 Year
  Sex: Female

DRUGS (1)
  1. PRIMAXIN [Suspect]
     Route: 041
     Dates: start: 20070201, end: 20070201

REACTIONS (1)
  - METABOLIC ALKALOSIS [None]
